FAERS Safety Report 8587065-0 (Version None)
Quarter: 2012Q3

REPORT INFORMATION
  Report Type: 
  Country: None (occurrence: None)
  Receive Date: 20120810
  Receipt Date: 20120806
  Transmission Date: 20120928
  Serious: Yes (Other)
  Sender: FDA-Public Use
  Company Number: US-ROCHE-1065800

PATIENT
  Sex: Female
  Weight: 81.72 kg

DRUGS (11)
  1. ACCUTANE [Suspect]
     Dates: start: 20000705, end: 20000918
  2. CELEBREX [Concomitant]
  3. ACCUTANE [Suspect]
     Dates: start: 20000121, end: 20000221
  4. FUROSEMIDE [Concomitant]
  5. ACCUTANE [Suspect]
     Dates: start: 20001013, end: 20001113
  6. PROMETHAZINE [Concomitant]
  7. ACCUTANE [Suspect]
     Dates: start: 20030930, end: 20031029
  8. ACCUTANE [Suspect]
     Indication: PSORIASIS
     Dates: start: 19970401
  9. ACCUTANE [Suspect]
     Dates: start: 20010111, end: 20010211
  10. ACCUTANE [Suspect]
     Dates: start: 20011203, end: 20020405
  11. ACCUTANE [Suspect]
     Dates: start: 20030303, end: 20030612

REACTIONS (7)
  - SUICIDAL IDEATION [None]
  - IRRITABLE BOWEL SYNDROME [None]
  - CROHN'S DISEASE [None]
  - INFLAMMATORY BOWEL DISEASE [None]
  - ARTHRITIS [None]
  - DEPRESSION [None]
  - ANAEMIA [None]
